FAERS Safety Report 17575218 (Version 4)
Quarter: 2020Q2

REPORT INFORMATION
  Report Type: Spontaneous
  Country: FR (occurrence: FR)
  Receive Date: 20200324
  Receipt Date: 20200616
  Transmission Date: 20200713
  Serious: Yes (Other)
  Sender: FDA-Public Use
  Company Number: FR-TEVA-2020-FR-1199888

PATIENT
  Age: 38 Year
  Sex: Female

DRUGS (2)
  1. COPAXONE [Suspect]
     Active Substance: GLATIRAMER ACETATE
     Route: 065
     Dates: start: 201705, end: 20200303
  2. COPAXONE [Suspect]
     Active Substance: GLATIRAMER ACETATE
     Dates: start: 20200318, end: 202003

REACTIONS (13)
  - Injection site pain [Recovering/Resolving]
  - Injection site pain [Not Recovered/Not Resolved]
  - Injection site induration [Not Recovered/Not Resolved]
  - Burning sensation [Recovering/Resolving]
  - Injection site necrosis [Recovering/Resolving]
  - Injection site erythema [Recovering/Resolving]
  - Hypersensitivity [Unknown]
  - Injection site warmth [Not Recovered/Not Resolved]
  - Neuralgia [Unknown]
  - Injection site injury [Recovering/Resolving]
  - Burns second degree [Recovering/Resolving]
  - Skin depigmentation [Unknown]
  - Injection site mass [Not Recovered/Not Resolved]

NARRATIVE: CASE EVENT DATE: 20200228
